FAERS Safety Report 19657521 (Version 1)
Quarter: 2021Q3

REPORT INFORMATION
  Report Type: Spontaneous
  Country: GB (occurrence: GB)
  Receive Date: 20210804
  Receipt Date: 20210804
  Transmission Date: 20211014
  Serious: Yes (Other)
  Sender: FDA-Public Use
  Company Number: GB-SAMSUNG BIOEPIS-SB-2021-18387

PATIENT
  Age: 5 Month
  Sex: Female

DRUGS (10)
  1. INFLIXIMAB [Suspect]
     Active Substance: INFLIXIMAB
     Indication: INFLAMMATORY MARKER INCREASED
  2. CEFTRIAXONE. [Concomitant]
     Active Substance: CEFTRIAXONE
     Indication: MULTISYSTEM INFLAMMATORY SYNDROME IN CHILDREN
     Dosage: UNKNOWN
     Route: 042
  3. METHYLPREDNISOLONE. [Concomitant]
     Active Substance: METHYLPREDNISOLONE
     Indication: MULTISYSTEM INFLAMMATORY SYNDROME IN CHILDREN
     Dosage: ON DAY 7 OF FEVER
     Route: 065
  4. ASPIRIN. [Concomitant]
     Active Substance: ASPIRIN
     Indication: THROMBOSIS PROPHYLAXIS
     Dosage: ON DAY 5 OF FEVER
     Route: 065
  5. INTRAVENOUS IMMUNOGLOBULIN [Concomitant]
     Active Substance: HUMAN IMMUNOGLOBULIN G
     Indication: MULTISYSTEM INFLAMMATORY SYNDROME IN CHILDREN
     Dosage: ON DAY 5 OF FEVER
     Route: 042
  6. INFLIXIMAB [Suspect]
     Active Substance: INFLIXIMAB
     Indication: CORONARY ARTERY ANEURYSM
     Dosage: ON DAY 12 OF FEVER
     Route: 065
  7. METHYLPREDNISOLONE. [Concomitant]
     Active Substance: METHYLPREDNISOLONE
     Dosage: ON DAY 10 OF FEVER
     Route: 065
  8. ANAKINRA [Concomitant]
     Active Substance: ANAKINRA
     Indication: CORONARY ARTERY ANEURYSM
     Dosage: ON DAY 7 OF FEVER
     Route: 065
  9. CLEXANE [Suspect]
     Active Substance: ENOXAPARIN SODIUM
     Indication: THROMBOSIS PROPHYLAXIS
     Dosage: UNKNOWN
     Route: 065
  10. WARFARIN [Concomitant]
     Active Substance: WARFARIN
     Indication: THROMBOSIS PROPHYLAXIS
     Dosage: UNKNOWN, GIVEN ON DAY 30 OF FEVER, TARGET INR (2 TO 3)
     Route: 048

REACTIONS (4)
  - Haemorrhage [Unknown]
  - Contusion [Unknown]
  - Discomfort [Unknown]
  - Off label use [Unknown]
